FAERS Safety Report 6068608-8 (Version None)
Quarter: 2009Q1

REPORT INFORMATION
  Report Type: 
  Country: None (occurrence: None)
  Receive Date: 20090206
  Receipt Date: 20090128
  Transmission Date: 20090719
  Serious: Yes (Death)
  Sender: FDA-Public Use
  Company Number: US-AVENTIS-200910784US

PATIENT
  Age: 78 Year
  Sex: Female
  Weight: 109 kg

DRUGS (1)
  1. LOVENOX [Suspect]
     Dates: start: 20090123, end: 20090126

REACTIONS (5)
  - CATHETER SITE HAEMORRHAGE [None]
  - DRUG TOXICITY [None]
  - HEART RATE INCREASED [None]
  - HYPOVENTILATION [None]
  - INJECTION SITE HAEMORRHAGE [None]
